FAERS Safety Report 22628039 (Version 2)
Quarter: 2023Q2

REPORT INFORMATION
  Report Type: Other
  Country: US (occurrence: None)
  Receive Date: 20230622
  Receipt Date: 20230623
  Transmission Date: 20230722
  Serious: No
  Sender: FDA-Public Use
  Company Number: US-ROCHE-3373951

PATIENT
  Age: 62 Year
  Sex: Female
  Weight: 72.64 kg

DRUGS (12)
  1. OCREVUS [Suspect]
     Active Substance: OCRELIZUMAB
     Indication: Relapsing-remitting multiple sclerosis
     Dosage: INFUSE 300MG IN DAY 1 AND INFUSE 300G IV DAY 15 AND THEN 600 MG ONCE IN 6 MONTHS,
     Route: 042
  2. PAXLOVID [Concomitant]
     Active Substance: NIRMATRELVIR\RITONAVIR
  3. AMPYRA [Concomitant]
     Active Substance: DALFAMPRIDINE
     Indication: Multiple sclerosis
  4. WELLBUTRIN [Concomitant]
     Active Substance: BUPROPION HYDROCHLORIDE
  5. TIZANIDINE [Concomitant]
     Active Substance: TIZANIDINE
  6. MYRBETRIQ [Concomitant]
     Active Substance: MIRABEGRON
  7. VITAMIN B12 [Concomitant]
     Active Substance: CYANOCOBALAMIN
  8. NIACIN [Concomitant]
     Active Substance: NIACIN
  9. VITAMIN D3 [Concomitant]
     Active Substance: CHOLECALCIFEROL
  10. NIRMATRELVIR\RITONAVIR [Concomitant]
     Active Substance: NIRMATRELVIR\RITONAVIR
  11. RITONAVIR [Concomitant]
     Active Substance: RITONAVIR
  12. BACLOFEN [Concomitant]
     Active Substance: BACLOFEN

REACTIONS (2)
  - COVID-19 [Unknown]
  - Illness [Unknown]
